FAERS Safety Report 18719331 (Version 2)
Quarter: 2021Q1

REPORT INFORMATION
  Report Type: Report from Study
  Country: None (occurrence: GR)
  Receive Date: 20210108
  Receipt Date: 20210203
  Transmission Date: 20210419
  Serious: Yes (Other)
  Sender: FDA-Public Use
  Company Number: GR-ABBVIE-20K-066-3647398-00

PATIENT
  Age: 65 Year
  Sex: Male
  Weight: 80 kg

DRUGS (7)
  1. DUODOPA [Suspect]
     Active Substance: CARBIDOPA\LEVODOPA
     Dosage: MORNING DOSE: 15.0 ML; CONTINUOUS RATE: 4.1 ML/H; EXTRA DOSE:2.0 ML
     Route: 050
     Dates: start: 20210105, end: 202101
  2. DUODOPA [Suspect]
     Active Substance: CARBIDOPA\LEVODOPA
     Dosage: MORNING DOSE: 15.0 ML; CONTINUOUS RATE: 4.3 ML/H; EXTRA DOSE:2.0 ML
     Route: 050
  3. REMERON [Concomitant]
     Active Substance: MIRTAZAPINE
     Indication: PRODUCT USED FOR UNKNOWN INDICATION
     Route: 048
     Dates: end: 202012
  4. REMERON [Concomitant]
     Active Substance: MIRTAZAPINE
     Dosage: 0.5 OF UNKNOWN UNIT DOSE
     Route: 048
     Dates: start: 202012
  5. DUODOPA [Suspect]
     Active Substance: CARBIDOPA\LEVODOPA
     Indication: PARKINSON^S DISEASE
     Dosage: MORNING DOSE: 15.0 ML; CONTINUOUS RATE: 4.0 ML/H; EXTRA DOSE: 2.0 ML
     Route: 050
     Dates: start: 20170307, end: 20210105
  6. QUEPIN [Concomitant]
     Active Substance: QUETIAPINE
     Indication: PRODUCT USED FOR UNKNOWN INDICATION
     Route: 048
     Dates: end: 202012
  7. QUEPIN [Concomitant]
     Active Substance: QUETIAPINE
     Route: 048
     Dates: start: 202012

REACTIONS (9)
  - Hyperresponsive to stimuli [Recovered/Resolved]
  - Hallucination [Recovered/Resolved]
  - Disorientation [Unknown]
  - Loss of personal independence in daily activities [Recovered/Resolved]
  - Aggression [Recovered/Resolved]
  - On and off phenomenon [Not Recovered/Not Resolved]
  - Fall [Recovering/Resolving]
  - Hip fracture [Recovering/Resolving]
  - Gait disturbance [Not Recovered/Not Resolved]

NARRATIVE: CASE EVENT DATE: 20201104
